FAERS Safety Report 12520820 (Version 1)
Quarter: 2016Q3

REPORT INFORMATION
  Report Type: Spontaneous
  Country: US (occurrence: None)
  Receive Date: 20160701
  Receipt Date: 20160701
  Transmission Date: 20161109
  Serious: Yes (Death)
  Sender: FDA-Public Use
  Company Number: None

PATIENT
  Age: 1 Month
  Sex: Male
  Weight: 3 kg

DRUGS (1)
  1. DOCUSATE ORAL SOLUTION, 10 MG/ML [Suspect]
     Active Substance: DOCUSATE SODIUM
     Indication: GASTROINTESTINAL DISORDER
     Dosage: 5 MG BID PER TUBE
     Dates: start: 20160511, end: 20160524

REACTIONS (2)
  - Burkholderia test positive [None]
  - Drug dose omission [None]

NARRATIVE: CASE EVENT DATE: 20160511
